FAERS Safety Report 12072560 (Version 1)
Quarter: 2016Q1

REPORT INFORMATION
  Report Type: Spontaneous
  Country: GB (occurrence: GB)
  Receive Date: 20160212
  Receipt Date: 20160212
  Transmission Date: 20160526
  Serious: Yes (Other)
  Sender: FDA-Public Use
  Company Number: GB-WATSON-2016-02534

PATIENT
  Age: 35 Year
  Sex: Female

DRUGS (2)
  1. CITALOPRAM [Suspect]
     Active Substance: CITALOPRAM HYDROBROMIDE
     Dosage: 40 MG, UNKNOWN (INITIALLY STARTED ON 20MG IN JAN-2014 THEN INCREASED UP TO 40MG IN JAN-2015)
     Route: 065
     Dates: start: 201501
  2. CITALOPRAM [Suspect]
     Active Substance: CITALOPRAM HYDROBROMIDE
     Indication: PRODUCT USED FOR UNKNOWN INDICATION
     Dosage: (INITIALLY STARTED ON 20MG IN JAN-2014 THEN INCREASED UP TO 40MG IN JAN-2015) 20 MG, UNKNOWN
     Route: 065
     Dates: start: 201401

REACTIONS (2)
  - Weight increased [Not Recovered/Not Resolved]
  - Withdrawal syndrome [Not Recovered/Not Resolved]
